FAERS Safety Report 8958335 (Version 2)
Quarter: 2013Q1

REPORT INFORMATION
  Report Type: Spontaneous
  Country: US (occurrence: US)
  Receive Date: 20121210
  Receipt Date: 20130102
  Transmission Date: 20140127
  Serious: Yes (Hospitalization)
  Sender: FDA-Public Use
  Company Number: US-BAYER-2012-128585

PATIENT
  Age: 43 Year
  Sex: Female
  Weight: 108.84 kg

DRUGS (7)
  1. SAFYRAL [Suspect]
     Indication: MENORRHAGIA
  2. PHENTERMINE [Concomitant]
     Indication: WEIGHT DECREASED
     Dosage: 37.5 MG, UNK
  3. ASCORBIC ACID [Concomitant]
     Dosage: 250 MG, DAILY
     Route: 048
  4. BIOTIN [Concomitant]
     Dosage: 5 MG, DAILY
     Route: 048
  5. CYANOCOBALAMIN [Concomitant]
     Dosage: 1000 ?G, UNK
     Route: 048
  6. MULTIVITAMIN [Concomitant]
     Dosage: 1 CAP, DAILY
     Route: 048
  7. VITAMINS [Concomitant]

REACTIONS (3)
  - Deep vein thrombosis [None]
  - Pulmonary embolism [None]
  - Off label use [None]
